FAERS Safety Report 5693935-3 (Version None)
Quarter: 2008Q2

REPORT INFORMATION
  Report Type: 
  Country: None (occurrence: None)
  Receive Date: 20080403
  Receipt Date: 20080128
  Transmission Date: 20081010
  Serious: Yes (Life-Threatening, Hospitalization)
  Sender: FDA-Public Use
  Company Number: JP-PFIZER INC-2008005901

PATIENT
  Sex: Female
  Weight: 1.06 kg

DRUGS (15)
  1. NELFINAVIR MESILATE [Suspect]
     Indication: HIV INFECTION
     Dosage: DAILY DOSE:2500MG-FREQ:INTERVAL: EVERY DAY
     Route: 064
     Dates: start: 20060609, end: 20060912
  2. ZIDOVUDINE [Suspect]
     Indication: HIV INFECTION
     Dosage: DAILY DOSE:400MG-FREQ:INTERVAL: EVERY DAY
     Route: 048
     Dates: start: 20041029, end: 20050928
  3. ZIDOVUDINE [Suspect]
     Dates: start: 20050301, end: 20050301
  4. ZIDOVUDINE [Suspect]
     Dosage: DAILY DOSE:400MG-FREQ:INTERVAL: EVERY DAY
     Route: 048
  5. ZIDOVUDINE [Suspect]
     Dosage: DAILY DOSE:400MG-FREQ:INTERVAL: EVERY DAY
     Dates: start: 20060609, end: 20060912
  6. ZIDOVUDINE [Suspect]
     Dosage: DAILY DOSE:400MG
     Dates: start: 20060913, end: 20060913
  7. ZIDOVUDINE [Suspect]
     Dosage: DAILY DOSE:2MG/KG-FREQ:INTERVAL: EVERY DAY
     Route: 048
     Dates: start: 20060916, end: 20061026
  8. LAMIVUDINE [Suspect]
     Indication: HIV INFECTION
     Route: 048
     Dates: start: 20041029, end: 20050228
  9. LAMIVUDINE [Suspect]
     Route: 048
  10. LAMIVUDINE [Suspect]
     Dates: start: 20060609, end: 20060912
  11. FERROUS FUMARATE [Concomitant]
     Dates: start: 20041029, end: 20050228
  12. LOPERAMIDE HYDROCHLORIDE [Concomitant]
     Dates: start: 20041029, end: 20041104
  13. SULTAMICILLIN TOSILATE [Concomitant]
     Dates: start: 20041118, end: 20050120
  14. SERRAPEPTASE [Concomitant]
     Dates: start: 20041118, end: 20050120
  15. DEXTROMETHORPHAN HYDROBROMIDE [Concomitant]
     Dates: start: 20041118, end: 20050120

REACTIONS (4)
  - ANAEMIA [None]
  - DRUG EXPOSURE DURING PREGNANCY [None]
  - FOETAL GROWTH RETARDATION [None]
  - SHOCK [None]
